FAERS Safety Report 11621677 (Version 1)
Quarter: 2015Q4

REPORT INFORMATION
  Report Type: Spontaneous
  Country: IN (occurrence: IN)
  Receive Date: 20151013
  Receipt Date: 20151013
  Transmission Date: 20160304
  Serious: No
  Sender: FDA-Public Use
  Company Number: IN-LUPIN PHARMACEUTICALS INC.-E2B_00002573

PATIENT
  Age: 25 Year
  Sex: Male

DRUGS (1)
  1. CEFAXONE [Suspect]
     Active Substance: CEFTRIAXONE
     Indication: TYPHOID FEVER
     Route: 042
     Dates: start: 20140930, end: 20140930

REACTIONS (1)
  - Rash [Not Recovered/Not Resolved]

NARRATIVE: CASE EVENT DATE: 20140930
